FAERS Safety Report 17147111 (Version 1)
Quarter: 2019Q4

REPORT INFORMATION
  Report Type: Spontaneous
  Country: SE (occurrence: SE)
  Receive Date: 20191212
  Receipt Date: 20191212
  Transmission Date: 20200122
  Serious: Yes (Disabling)
  Sender: FDA-Public Use
  Company Number: SE-ACCORD-164685

PATIENT
  Age: 70 Year
  Sex: Male

DRUGS (11)
  1. SIMVASTATIN. [Concomitant]
     Active Substance: SIMVASTATIN
  2. TROMBYL [Concomitant]
     Active Substance: ASPIRIN
  3. ENALAPRIL [Concomitant]
     Active Substance: ENALAPRIL
  4. CARBOPLATIN. [Suspect]
     Active Substance: CARBOPLATIN
     Indication: LUNG SQUAMOUS CELL CARCINOMA STAGE I
     Dates: end: 20160517
  5. METFORMIN [Concomitant]
     Active Substance: METFORMIN HYDROCHLORIDE
  6. CARBOPLATIN. [Suspect]
     Active Substance: CARBOPLATIN
     Indication: ADJUVANT THERAPY
     Dosage: AUC 5 PHARMACEUTICAL DOSE FORM: INTRAVENOUS (NOT OTHERWISE SPECIFIED)
     Route: 042
     Dates: start: 20160405, end: 20160517
  7. TENORMIN [Concomitant]
     Active Substance: ATENOLOL
  8. DAONIL [Concomitant]
     Active Substance: GLYBURIDE
  9. NAVELBINE [Suspect]
     Active Substance: VINORELBINE TARTRATE
     Indication: LUNG SQUAMOUS CELL CARCINOMA STAGE I
  10. NAVELBINE [Suspect]
     Active Substance: VINORELBINE TARTRATE
     Indication: ADJUVANT THERAPY
     Route: 042
     Dates: start: 20160405, end: 20160517
  11. LASIX [Concomitant]
     Active Substance: FUROSEMIDE

REACTIONS (1)
  - Tooth loss [Not Recovered/Not Resolved]

NARRATIVE: CASE EVENT DATE: 20170501
